FAERS Safety Report 4655094-5 (Version None)
Quarter: 2005Q2

REPORT INFORMATION
  Report Type: 
  Country: None (occurrence: None)
  Receive Date: 20050505
  Receipt Date: 20050502
  Transmission Date: 20051028
  Serious: Yes (Life-Threatening)
  Sender: FDA-Public Use
  Company Number: 2005-127843-NL

PATIENT
  Age: 47 Year
  Sex: Male

DRUGS (4)
  1. MIRTAZAPINE [Suspect]
     Indication: ANTIDEPRESSANT THERAPY
     Dosage: 15 MG BID/15 MG/3000 MG ONCE ORAL
     Route: 048
     Dates: start: 20000501, end: 20020401
  2. MIRTAZAPINE [Suspect]
     Indication: ANTIDEPRESSANT THERAPY
     Dosage: 15 MG BID/15 MG/3000 MG ONCE ORAL
     Route: 048
     Dates: start: 20021101
  3. INTERFERON ALFA-2A [Concomitant]
  4. RIBAVIRIN [Concomitant]

REACTIONS (5)
  - CONDITION AGGRAVATED [None]
  - DEPRESSION [None]
  - INTENTIONAL MISUSE [None]
  - OVERDOSE [None]
  - SUICIDE ATTEMPT [None]
